FAERS Safety Report 6175089-2 (Version None)
Quarter: 2009Q2

REPORT INFORMATION
  Report Type: 
  Country: None (occurrence: None)
  Receive Date: 20090430
  Receipt Date: 20090224
  Transmission Date: 20091009
  Serious: No
  Sender: FDA-Public Use
  Company Number: US-ASTRAZENECA-2009UW05105

PATIENT
  Age: 76 Year
  Sex: Female
  Weight: 65.8 kg

DRUGS (7)
  1. NEXIUM [Suspect]
     Route: 048
  2. SEROQUEL [Suspect]
     Route: 048
  3. LORAZEPAM [Concomitant]
  4. SYNTHROID [Concomitant]
  5. LORTAB [Concomitant]
  6. PLENDIL [Concomitant]
  7. XALATAN [Concomitant]

REACTIONS (2)
  - CATARACT [None]
  - GLAUCOMA [None]
